FAERS Safety Report 6130248-X (Version None)
Quarter: 2009Q1

REPORT INFORMATION
  Report Type: 
  Country: None (occurrence: None)
  Receive Date: 20090324
  Receipt Date: 20090317
  Transmission Date: 20090719
  Serious: Yes (Other)
  Sender: FDA-Public Use
  Company Number: US-PFIZER INC-2006056264

PATIENT
  Sex: Female
  Weight: 83.9 kg

DRUGS (12)
  1. PROVERA [Suspect]
     Indication: HORMONE REPLACEMENT THERAPY
     Dosage: UNK
     Route: 048
     Dates: start: 19940901, end: 20020601
  2. PROVERA [Suspect]
     Indication: MENOPAUSE
  3. MEDROXYPROGESTERONE AND MEDROXYPROGESTERONE ACETATE [Suspect]
     Indication: HORMONE REPLACEMENT THERAPY
     Dosage: UNK
     Dates: start: 19940901, end: 20020601
  4. MEDROXYPROGESTERONE AND MEDROXYPROGESTERONE ACETATE [Suspect]
     Indication: MENOPAUSE
  5. ESTRACE [Suspect]
     Indication: HORMONE REPLACEMENT THERAPY
     Dosage: UNK
     Route: 065
     Dates: start: 19940901, end: 20020601
  6. ESTRACE [Suspect]
     Indication: MENOPAUSE
  7. ESTRADIOL [Suspect]
     Indication: HORMONE REPLACEMENT THERAPY
     Dosage: UNK
     Route: 065
     Dates: start: 19940901, end: 20020601
  8. ESTRADIOL [Suspect]
     Indication: MENOPAUSE
  9. PREMARIN [Suspect]
     Indication: HORMONE REPLACEMENT THERAPY
     Route: 065
     Dates: start: 19940901, end: 20020401
  10. CLONAZEPAM [Concomitant]
     Indication: SOMNOLENCE
     Dosage: UNK
     Dates: start: 19970101, end: 20020101
  11. CHOLINE MAGNESIUM TRISALICYLATE [Concomitant]
     Dosage: UNK
     Dates: start: 20000101
  12. METHOCARBAMOL [Concomitant]
     Indication: ARTHRITIS
     Dosage: UNK
     Dates: start: 20000101

REACTIONS (1)
  - BREAST CANCER FEMALE [None]
